FAERS Safety Report 9459875 (Version 2)
Quarter: 2013Q3

REPORT INFORMATION
  Report Type: Report from Study
  Country: JP (occurrence: JP)
  Receive Date: 20130815
  Receipt Date: 20130903
  Transmission Date: 20140515
  Serious: Yes (Hospitalization, Other)
  Sender: FDA-Public Use
  Company Number: JP-JNJFOC-20130616198

PATIENT
  Age: 59 Year
  Sex: Male
  Weight: 81 kg

DRUGS (9)
  1. ONEDURO [Suspect]
     Indication: CANCER PAIN
     Route: 062
     Dates: start: 20130401
  2. ONEDURO [Suspect]
     Indication: CANCER PAIN
     Route: 062
     Dates: start: 20130201, end: 20130331
  3. MUCOSTA [Concomitant]
     Indication: PROPHYLAXIS
     Route: 048
  4. WARFARIN [Concomitant]
     Indication: PERIPHERAL ARTERY THROMBOSIS
     Route: 048
  5. TAKEPRON [Concomitant]
     Indication: PROPHYLAXIS
     Route: 048
  6. FERROMIA [Concomitant]
     Indication: ANAEMIA
     Route: 048
  7. LOXONIN [Concomitant]
     Indication: CANCER PAIN
     Route: 048
  8. MEDICON [Concomitant]
     Indication: PROPHYLAXIS
     Route: 048
  9. CALONAL [Concomitant]
     Indication: CANCER PAIN
     Route: 048

REACTIONS (3)
  - Pleural effusion [Recovering/Resolving]
  - Lung neoplasm malignant [Not Recovered/Not Resolved]
  - Drug intolerance [Unknown]
